FAERS Safety Report 8156636-8 (Version None)
Quarter: 2012Q1

REPORT INFORMATION
  Report Type: 
  Country: None (occurrence: None)
  Receive Date: 20120221
  Receipt Date: 20120221
  Transmission Date: 20120608
  Serious: Yes (Hospitalization)
  Sender: FDA-Public Use
  Company Number: None

PATIENT
  Sex: Male
  Weight: 68 kg

DRUGS (4)
  1. G-CSF (FILGRASTIM, AMGEN) [Suspect]
     Dosage: 3 MG
  2. LEUCOVORIN CALCIUM [Suspect]
     Dosage: 17610 MG
  3. DOXORUBICIN HCL [Suspect]
     Dosage: 134 MG
  4. METHOTREXATE [Suspect]
     Dosage: 20000 MG

REACTIONS (1)
  - MYELODYSPLASTIC SYNDROME [None]
